FAERS Safety Report 7622264-3 (Version None)
Quarter: 2011Q3

REPORT INFORMATION
  Report Type: 
  Country: None (occurrence: None)
  Receive Date: 20110720
  Receipt Date: 20090709
  Transmission Date: 20111222
  Serious: Yes (Other)
  Sender: FDA-Public Use
  Company Number: CH-BAYER-2011-041338

PATIENT

DRUGS (1)
  1. INTERFERON BETA-1B [Suspect]
     Dosage: UNK
     Dates: start: 20090518

REACTIONS (6)
  - MULTIPLE SCLEROSIS RELAPSE [None]
  - VOMITING [None]
  - STRESS AT WORK [None]
  - INJECTION SITE ERYTHEMA [None]
  - HYPERHIDROSIS [None]
  - IMPAIRED WORK ABILITY [None]
